FAERS Safety Report 15336566 (Version 4)
Quarter: 2021Q3

REPORT INFORMATION
  Report Type: Report from Study
  Country: DE (occurrence: DE)
  Receive Date: 20180830
  Receipt Date: 20210713
  Transmission Date: 20211014
  Serious: Yes (Hospitalization, Congenital Anomaly)
  Sender: FDA-Public Use
  Company Number: DE-BIOGEN-2018BI00626833

PATIENT
  Age: 0 Day
  Sex: Male

DRUGS (3)
  1. FOLIO FORTE [Concomitant]
     Active Substance: FOLIC ACID\VITAMINS
     Indication: MATERNAL EXPOSURE TIMING UNSPECIFIED
     Route: 065
     Dates: start: 201709, end: 201805
  2. VITAMIN K [Concomitant]
     Active Substance: PHYTONADIONE
     Indication: PROPHYLAXIS
     Route: 048
  3. PLEGRIDY [Suspect]
     Active Substance: PEGINTERFERON BETA-1A
     Indication: MATERNAL EXPOSURE TIMING UNSPECIFIED
     Route: 050
     Dates: start: 20151112, end: 20170909

REACTIONS (2)
  - Hypospadias [Recovered/Resolved]
  - Foetal exposure during pregnancy [Recovered/Resolved]

NARRATIVE: CASE EVENT DATE: 20180514
